FAERS Safety Report 21859214 (Version 1)
Quarter: 2023Q1

REPORT INFORMATION
  Report Type: Spontaneous
  Country: DZ (occurrence: DZ)
  Receive Date: 20230113
  Receipt Date: 20230113
  Transmission Date: 20230418
  Serious: Yes (Other)
  Sender: FDA-Public Use
  Company Number: DZ-MLMSERVICE-20221228-4007704-1

PATIENT
  Age: 25 Year
  Sex: Female

DRUGS (2)
  1. METHOTREXATE [Suspect]
     Active Substance: METHOTREXATE
     Indication: Acute lymphocytic leukaemia
     Dosage: 1.315 G OVER 43 HOURS
  2. LEUCOVORIN [Concomitant]
     Active Substance: LEUCOVORIN

REACTIONS (5)
  - Mouth ulceration [Recovering/Resolving]
  - Toxicity to various agents [Recovering/Resolving]
  - Drug clearance decreased [Recovering/Resolving]
  - Liver injury [Recovering/Resolving]
  - Renal failure [Recovering/Resolving]
